FAERS Safety Report 14892964 (Version 1)
Quarter: 2018Q2

REPORT INFORMATION
  Report Type: Spontaneous
  Country: JP (occurrence: JP)
  Receive Date: 20180514
  Receipt Date: 20180514
  Transmission Date: 20180711
  Serious: Yes (Death, Hospitalization, Other)
  Sender: FDA-Public Use
  Company Number: JP-BRISTOL-MYERS SQUIBB COMPANY-BMS-2017-081394

PATIENT
  Age: 83 Year
  Sex: Female

DRUGS (2)
  1. NIVOLUMAB [Suspect]
     Active Substance: NIVOLUMAB
     Indication: NON-SMALL CELL LUNG CANCER RECURRENT
     Dosage: 184.5 MG, UNK
     Route: 041
     Dates: start: 20160617
  2. NIVOLUMAB [Suspect]
     Active Substance: NIVOLUMAB
     Indication: PRODUCT USED FOR UNKNOWN INDICATION
     Dosage: 180 UNK, UNK
     Route: 041
     Dates: start: 20160705, end: 20160816

REACTIONS (6)
  - Interstitial lung disease [Recovered/Resolved]
  - Hip fracture [Unknown]
  - Pleural effusion [Not Recovered/Not Resolved]
  - Malignant neoplasm progression [Fatal]
  - Patella fracture [Not Recovered/Not Resolved]
  - Lung disorder [Recovering/Resolving]

NARRATIVE: CASE EVENT DATE: 20160620
